FAERS Safety Report 5694797-0 (Version None)
Quarter: 2008Q2

REPORT INFORMATION
  Report Type: 
  Country: None (occurrence: None)
  Receive Date: 20080404
  Receipt Date: 20080328
  Transmission Date: 20081010
  Serious: Yes (Life-Threatening, Hospitalization)
  Sender: FDA-Public Use
  Company Number: DE-BAYER-200710990BVD

PATIENT
  Age: 53 Year
  Sex: Male
  Weight: 73 kg

DRUGS (6)
  1. SORAFENIB [Suspect]
     Indication: NON-SMALL CELL LUNG CANCER
     Dosage: TOTAL DAILY DOSE: 800 MG
     Route: 048
     Dates: start: 20070821
  2. GEMCITABINE [Suspect]
     Indication: NON-SMALL CELL LUNG CANCER
     Dosage: UNIT DOSE: 1250 MG/M2
     Route: 042
     Dates: start: 20070828, end: 20070828
  3. GEMCITABINE [Suspect]
     Dosage: UNIT DOSE: 1250 MG/M2
     Route: 042
     Dates: start: 20070821, end: 20070821
  4. CISPLATIN [Suspect]
     Indication: NON-SMALL CELL LUNG CANCER
     Dosage: UNIT DOSE: 75 MG/M2
     Route: 042
     Dates: start: 20070821, end: 20070821
  5. ACETAMINOPHEN [Concomitant]
     Indication: PYREXIA
     Route: 048
     Dates: start: 20070901
  6. GRANOCYTE 34 [Concomitant]
     Indication: LEUKOPENIA
     Route: 058
     Dates: start: 20070902

REACTIONS (3)
  - PANCYTOPENIA [None]
  - PNEUMONIA [None]
  - SEPSIS [None]
